FAERS Safety Report 9768936 (Version 3)
Quarter: 2014Q3

REPORT INFORMATION
  Report Type: Spontaneous
  Country: BR (occurrence: None)
  Receive Date: 20131216
  Receipt Date: 20140821
  Transmission Date: 20150326
  Serious: Yes (Other)
  Sender: FDA-Public Use
  Company Number: 1312-1572

PATIENT
  Age: 65 Year
  Sex: Female

DRUGS (2)
  1. EYLEA [Suspect]
     Active Substance: AFLIBERCEPT
     Indication: PRODUCT USED FOR UNKNOWN INDICATION
     Route: 031
  2. TRIAMCINOLONE (TRIAMCINOLONE) [Concomitant]

REACTIONS (4)
  - Visual acuity reduced [None]
  - Non-infectious endophthalmitis [None]
  - Inflammation [None]
  - Macular oedema [None]
